FAERS Safety Report 13092865 (Version 1)
Quarter: 2017Q1

REPORT INFORMATION
  Report Type: Spontaneous
  Country: US (occurrence: US)
  Receive Date: 20170105
  Receipt Date: 20170105
  Transmission Date: 20170428
  Serious: Yes (Hospitalization, Other)
  Sender: FDA-Public Use
  Company Number: None

PATIENT
  Age: 33 Year
  Sex: Female
  Weight: 61.29 kg

DRUGS (2)
  1. MIRENA [Suspect]
     Active Substance: LEVONORGESTREL
     Indication: CONTRACEPTION
     Dosage: EVERY 5 YEARS
     Route: 067
     Dates: start: 20161130, end: 20161216
  2. POSTMATAL VITAMIN [Concomitant]

REACTIONS (3)
  - Device dislocation [None]
  - Pain [None]
  - Uterine perforation [None]

NARRATIVE: CASE EVENT DATE: 20161214
